FAERS Safety Report 8838052 (Version 1)
Quarter: 2012Q4

REPORT INFORMATION
  Report Type: 
  Country: US (occurrence: US)
  Receive Date: 20121012
  Receipt Date: 20121012
  Transmission Date: 20130627
  Serious: Yes (Other)
  Sender: FDA-Public Use
  Company Number: US-ASTELLAS-2012US010035

PATIENT

DRUGS (2)
  1. LEXISCAN [Suspect]
     Indication: SCAN MYOCARDIAL PERFUSION
     Dosage: UNK
     Route: 065
  2. UNSPECIFIED RADIOISOTOPE [Concomitant]
     Indication: SCAN MYOCARDIAL PERFUSION
     Dosage: UNK
     Route: 065

REACTIONS (1)
  - Adverse event [Recovered/Resolved]
